FAERS Safety Report 10039359 (Version 1)
Quarter: 2014Q1

REPORT INFORMATION
  Report Type: Spontaneous
  Country: US (occurrence: US)
  Receive Date: 20140326
  Receipt Date: 20140326
  Transmission Date: 20141002
  Serious: No
  Sender: FDA-Public Use
  Company Number: US-PFIZER INC-2014082308

PATIENT
  Age: 55 Year
  Sex: Female

DRUGS (4)
  1. BOSULIF [Suspect]
     Dosage: 400 MG, 1X/DAY
     Route: 048
     Dates: start: 20140306
  2. CLARITIN [Concomitant]
     Dosage: 10 MG, UNK
  3. NAPROXEN [Concomitant]
     Dosage: 250 MG, UNK
  4. VITAMIN D [Concomitant]
     Dosage: 50000 IU, UNK

REACTIONS (3)
  - Nausea [Not Recovered/Not Resolved]
  - Fatigue [Not Recovered/Not Resolved]
  - Rash [Not Recovered/Not Resolved]
